FAERS Safety Report 12347370 (Version 1)
Quarter: 2016Q2

REPORT INFORMATION
  Report Type: Spontaneous
  Country: IT (occurrence: IT)
  Receive Date: 20160509
  Receipt Date: 20160509
  Transmission Date: 20160815
  Serious: Yes (Hospitalization)
  Sender: FDA-Public Use
  Company Number: IT-MEDA-2016040102

PATIENT
  Age: 75 Year
  Sex: Male

DRUGS (1)
  1. MESALAZINE [Suspect]
     Active Substance: MESALAMINE
     Indication: COLITIS

REACTIONS (2)
  - Bone marrow failure [Unknown]
  - Agranulocytosis [Recovering/Resolving]
